FAERS Safety Report 7249545-X (Version None)
Quarter: 2011Q1

REPORT INFORMATION
  Report Type: 
  Country: None (occurrence: None)
  Receive Date: 20110128
  Receipt Date: 20101227
  Transmission Date: 20110831
  Serious: Yes (Life-Threatening, Hospitalization)
  Sender: FDA-Public Use
  Company Number: US-BAYER-2010-008433

PATIENT
  Sex: Female
  Weight: 61 kg

DRUGS (6)
  1. LAMICTAL [Concomitant]
  2. DILANTIN [Concomitant]
  3. DITROPAN [Concomitant]
  4. EFFEXOR XR [Concomitant]
  5. MIDOL MENSTRUAL COMPLETE FORMULA [Suspect]
     Dosage: 2 DF, UNK
  6. DEPAKOTE [Concomitant]

REACTIONS (4)
  - CARDIAC ARREST [None]
  - DYSPNOEA [None]
  - LOSS OF CONSCIOUSNESS [None]
  - HYPERSENSITIVITY [None]
